FAERS Safety Report 23819280 (Version 1)
Quarter: 2024Q2

REPORT INFORMATION
  Report Type: Spontaneous
  Country: US (occurrence: None)
  Receive Date: 20240506
  Receipt Date: 20240506
  Transmission Date: 20240716
  Serious: No
  Sender: FDA-Public Use
  Company Number: 2024A090524

PATIENT

DRUGS (1)
  1. BREZTRI [Suspect]
     Active Substance: BUDESONIDE\FORMOTEROL\GLYCOPYRROLATE
     Route: 055

REACTIONS (6)
  - Oral pain [Unknown]
  - Glossodynia [Unknown]
  - Immunodeficiency [Unknown]
  - Oral disorder [Unknown]
  - Dysphonia [Unknown]
  - Wrong technique in device usage process [Unknown]
